FAERS Safety Report 7273778-X (Version None)
Quarter: 2011Q1

REPORT INFORMATION
  Report Type: 
  Country: None (occurrence: None)
  Receive Date: 20110203
  Receipt Date: 20110128
  Transmission Date: 20110831
  Serious: Yes (Death, Hospitalization, Other)
  Sender: FDA-Public Use
  Company Number: PL-PFIZER INC-2011014056

PATIENT
  Age: 74 Year
  Sex: Female
  Weight: 50 kg

DRUGS (1)
  1. SUTENT [Suspect]
     Indication: RENAL CANCER METASTATIC
     Dosage: 50 MG, 1X/DAY
     Route: 048
     Dates: start: 20101223, end: 20110107

REACTIONS (6)
  - THROMBOCYTOPENIA [None]
  - RESPIRATORY FAILURE [None]
  - ISCHAEMIC STROKE [None]
  - PYREXIA [None]
  - STOMATITIS [None]
  - PULMONARY EMBOLISM [None]
